FAERS Safety Report 18220617 (Version 1)
Quarter: 2020Q3

REPORT INFORMATION
  Report Type: Spontaneous
  Country: CN (occurrence: CN)
  Receive Date: 20200902
  Receipt Date: 20200902
  Transmission Date: 20201103
  Serious: Yes (Other)
  Sender: FDA-Public Use
  Company Number: CN-ROCHE-2667856

PATIENT
  Age: 52 Year
  Sex: Male

DRUGS (14)
  1. XELODA [Suspect]
     Active Substance: CAPECITABINE
     Indication: RECTAL ADENOCARCINOMA
     Dosage: DAY1 TO DAY14
     Route: 065
     Dates: start: 20151125
  2. XELODA [Suspect]
     Active Substance: CAPECITABINE
     Dosage: DAY1 TO DAY14
     Route: 065
     Dates: start: 20190301
  3. CETUXIMAB. [Concomitant]
     Active Substance: CETUXIMAB
  4. AVASTIN [Suspect]
     Active Substance: BEVACIZUMAB
     Indication: RECTAL ADENOCARCINOMA
     Dosage: DAY1,ONCE PER 3 WEEKS
     Route: 065
     Dates: start: 20190301
  5. OXALIPLATIN. [Concomitant]
     Active Substance: OXALIPLATIN
     Indication: RECTAL ADENOCARCINOMA
     Dosage: DAY1
     Dates: start: 20151125
  6. OXALIPLATIN. [Concomitant]
     Active Substance: OXALIPLATIN
     Dosage: DAY1
     Dates: start: 20160216, end: 20160421
  7. FLUOROURACIL. [Concomitant]
     Active Substance: FLUOROURACIL
  8. IRINOTECAN [Concomitant]
     Active Substance: IRINOTECAN
  9. REGORAFENIB. [Concomitant]
     Active Substance: REGORAFENIB
  10. XELODA [Suspect]
     Active Substance: CAPECITABINE
     Dosage: DAY1 TO DAY5,ONCE PER WEEK
     Route: 065
     Dates: start: 20151230
  11. XELODA [Suspect]
     Active Substance: CAPECITABINE
     Dosage: DAY1 TO DAY14
     Route: 065
     Dates: start: 20160216, end: 20160421
  12. OXALIPLATIN. [Concomitant]
     Active Substance: OXALIPLATIN
  13. CALCIUM FOLINATE [Concomitant]
     Active Substance: LEUCOVORIN CALCIUM
  14. XELODA [Suspect]
     Active Substance: CAPECITABINE
     Route: 048

REACTIONS (9)
  - Decreased appetite [Unknown]
  - Palmar-plantar erythrodysaesthesia syndrome [Unknown]
  - White blood cell count decreased [Unknown]
  - Myelosuppression [Unknown]
  - Alopecia [Unknown]
  - Neurotoxicity [Unknown]
  - Blood pressure increased [Unknown]
  - Vomiting [Unknown]
  - Nausea [Unknown]

NARRATIVE: CASE EVENT DATE: 2019
